FAERS Safety Report 5606519-X (Version None)
Quarter: 2008Q1

REPORT INFORMATION
  Report Type: 
  Country: None (occurrence: None)
  Receive Date: 20080129
  Receipt Date: 20080121
  Transmission Date: 20080703
  Serious: Yes (Hospitalization)
  Sender: FDA-Public Use
  Company Number: B0501212A

PATIENT
  Age: 4 Day
  Sex: Female
  Weight: 2.6 kg

DRUGS (1)
  1. PAXIL [Suspect]
     Indication: DRUG USE FOR UNKNOWN INDICATION
     Dosage: 30MG PER DAY

REACTIONS (11)
  - ASPARTATE AMINOTRANSFERASE INCREASED [None]
  - CONSTIPATION [None]
  - DRUG EXPOSURE DURING PREGNANCY [None]
  - DRUG WITHDRAWAL SYNDROME NEONATAL [None]
  - DYSKINESIA [None]
  - HYPERKINESIA [None]
  - IRRITABILITY [None]
  - MUSCLE TIGHTNESS [None]
  - PULSE ABNORMAL [None]
  - RESPIRATORY FAILURE [None]
  - VOMITING [None]
